FAERS Safety Report 4727423-5 (Version None)
Quarter: 2005Q3

REPORT INFORMATION
  Report Type: 
  Country: None (occurrence: None)
  Receive Date: 20050727
  Receipt Date: 20050727
  Transmission Date: 20060218
  Serious: Yes (Hospitalization)
  Sender: FDA-Public Use
  Company Number: None

PATIENT
  Age: 57 Year
  Sex: Male
  Weight: 90 kg

DRUGS (7)
  1. ROSUVASTATIN [Suspect]
     Indication: BLOOD CHOLESTEROL INCREASED
     Dosage: [PREVIOUS MONTHS]
  2. CELECOXIB [Suspect]
     Indication: PAIN
     Dosage: [PREVIOUS MONTHS]
  3. CRESTOR [Concomitant]
  4. CLOPIDOGREL BISULFATE [Concomitant]
  5. TARKA [Concomitant]
  6. GLIPIZIDE [Concomitant]
  7. ATENOLOL [Concomitant]

REACTIONS (6)
  - CARDIAC ARREST [None]
  - HAEMODIALYSIS [None]
  - HYPERKALAEMIA [None]
  - HYPOTENSION [None]
  - RENAL FAILURE ACUTE [None]
  - SEPSIS [None]
